FAERS Safety Report 10787769 (Version 2)
Quarter: 2015Q1

REPORT INFORMATION
  Report Type: Spontaneous
  Country: IT (occurrence: IT)
  Receive Date: 20150212
  Receipt Date: 20150312
  Transmission Date: 20150721
  Serious: Yes (Hospitalization)
  Sender: FDA-Public Use
  Company Number: IT-RANBAXY-2015RR-92707

PATIENT
  Age: 29 Year
  Sex: Male

DRUGS (1)
  1. AMOXICILLIN. [Suspect]
     Active Substance: AMOXICILLIN
     Indication: MEDICATION ERROR
     Dosage: 4 G TOTAL (TABLET)
     Route: 048
     Dates: start: 20140912, end: 20140912

REACTIONS (2)
  - Medication error [Recovered/Resolved]
  - Epigastric discomfort [Recovered/Resolved]

NARRATIVE: CASE EVENT DATE: 20140812
